FAERS Safety Report 7370672-0 (Version None)
Quarter: 2011Q1

REPORT INFORMATION
  Report Type: 
  Country: None (occurrence: None)
  Receive Date: 20110323
  Receipt Date: 20110308
  Transmission Date: 20110831
  Serious: No
  Sender: FDA-Public Use
  Company Number: US-BAYER-2011-021970

PATIENT
  Sex: Male
  Weight: 95 kg

DRUGS (2)
  1. ONE A DAY MEN'S 50 PLUS ADVANTAGE [Suspect]
     Indication: VITAMIN SUPPLEMENTATION
     Dosage: 1 DF, QD
     Route: 048
     Dates: start: 20100101
  2. ONE-A-DAY MEN'S HEALTH [Suspect]
     Indication: VITAMIN SUPPLEMENTATION
     Dosage: 1 DF, QD
     Route: 048
     Dates: start: 20110101, end: 20110305

REACTIONS (5)
  - AGITATION [None]
  - HYPOAESTHESIA ORAL [None]
  - PALPITATIONS [None]
  - PARAESTHESIA ORAL [None]
  - ERYTHEMA [None]
